FAERS Safety Report 15626505 (Version 2)
Quarter: 2018Q4

REPORT INFORMATION
  Report Type: Spontaneous
  Country: GB (occurrence: GB)
  Receive Date: 20181116
  Receipt Date: 20181204
  Transmission Date: 20190205
  Serious: Yes (Life-Threatening, Other)
  Sender: FDA-Public Use
  Company Number: GB-PFIZER INC-2015381803

PATIENT
  Age: 56 Year
  Sex: Male

DRUGS (11)
  1. SODIUM VALPROATE [Concomitant]
     Active Substance: VALPROATE SODIUM
     Dosage: 500MG MANE
  2. FENTANYL. [Suspect]
     Active Substance: FENTANYL
     Dosage: 100 MCG 72 HOURLY
     Route: 062
  3. ASPIRIN /00002701/ [Concomitant]
     Active Substance: ASPIRIN
     Dosage: 75 MG MANE
  4. CITALOPRAM [Concomitant]
     Active Substance: CITALOPRAM HYDROBROMIDE
     Dosage: 20 MG MANE
  5. HUMAN INSULINK [Concomitant]
     Active Substance: INSULIN HUMAN
     Dosage: 14 UNITS NOCTE
  6. TRAMADOL. [Concomitant]
     Active Substance: TRAMADOL
     Dosage: 100 MG
  7. ATORVASTATIN [Concomitant]
     Active Substance: ATORVASTATIN
     Dosage: 40 MG MANE
  8. NAPROXEN. [Concomitant]
     Active Substance: NAPROXEN
     Dosage: 250 MG
  9. METFORMIN [Concomitant]
     Active Substance: METFORMIN HYDROCHLORIDE
     Dosage: 1G BID
  10. SODIUM VALPROATE [Concomitant]
     Active Substance: VALPROATE SODIUM
     Dosage: 1 G NOCTE
  11. HUMAN INSULINK [Concomitant]
     Active Substance: INSULIN HUMAN
     Dosage: 16 UNITS MANE

REACTIONS (4)
  - Toxicity to various agents [Unknown]
  - Cyanosis [Unknown]
  - Somnolence [Unknown]
  - Accidental overdose [Unknown]
